FAERS Safety Report 8400449-6 (Version None)
Quarter: 2012Q2

REPORT INFORMATION
  Report Type: 
  Country: None (occurrence: None)
  Receive Date: 20120531
  Receipt Date: 20110613
  Transmission Date: 20120825
  Serious: No
  Sender: FDA-Public Use
  Company Number: US-NOVEN-11US002613

PATIENT
  Sex: Male

DRUGS (1)
  1. DAYTRANA [Suspect]
     Indication: ATTENTION DEFICIT/HYPERACTIVITY DISORDER
     Dosage: 30 MG, 1 AND A HALF PATCHES, QD
     Route: 062
     Dates: start: 20101001

REACTIONS (5)
  - WRONG TECHNIQUE IN DRUG USAGE PROCESS [None]
  - PRODUCT QUALITY ISSUE [None]
  - DRUG PRESCRIBING ERROR [None]
  - NO ADVERSE EVENT [None]
  - OFF LABEL USE [None]
